FAERS Safety Report 9848922 (Version 1)
Quarter: 2013Q4

REPORT INFORMATION
  Report Type: Spontaneous
  Country: US (occurrence: None)
  Receive Date: 20131226
  Receipt Date: 20131226
  Transmission Date: 20140711
  Serious: Yes (Other)
  Sender: FDA-Public Use
  Company Number: PHEH2012US021257

PATIENT
  Age: 41 Year
  Sex: Female

DRUGS (1)
  1. EXTAVIA [Suspect]
     Indication: MULTIPLE SCLEROSIS
     Route: 058
     Dates: start: 20120627

REACTIONS (5)
  - Multiple sclerosis relapse [None]
  - Injection site erythema [None]
  - Injection site pruritus [None]
  - Limb discomfort [None]
  - Wrong technique in drug usage process [None]
